FAERS Safety Report 5828571-9 (Version None)
Quarter: 2008Q3

REPORT INFORMATION
  Report Type: 
  Country: None (occurrence: None)
  Receive Date: 20080731
  Receipt Date: 20080724
  Transmission Date: 20090109
  Serious: Yes (Other)
  Sender: FDA-Public Use
  Company Number: AU-ASTRAZENECA-2007AP05925

PATIENT
  Age: 11326 Day
  Sex: Female

DRUGS (2)
  1. SEROQUEL [Suspect]
     Dosage: 25-50 MG
     Route: 048
     Dates: start: 20070831
  2. LUVOX [Concomitant]
     Dosage: LONG TERM USER
     Route: 048

REACTIONS (2)
  - GAIT DISTURBANCE [None]
  - OCULOGYRIC CRISIS [None]
